FAERS Safety Report 18072152 (Version 3)
Quarter: 2020Q4

REPORT INFORMATION
  Report Type: Report from Study
  Country: CO (occurrence: CO)
  Receive Date: 20200727
  Receipt Date: 20201118
  Transmission Date: 20210113
  Serious: Yes (Hospitalization, Other)
  Sender: FDA-Public Use
  Company Number: NVSC2020CO207276

PATIENT
  Age: 58 Year
  Sex: Male
  Weight: 91 kg

DRUGS (8)
  1. IRBESARTAN. [Suspect]
     Active Substance: IRBESARTAN
     Indication: HYPERTENSION
     Dosage: 150 MG, QD
     Route: 048
  2. JANUVIA [Concomitant]
     Active Substance: SITAGLIPTIN PHOSPHATE
     Indication: DIABETES MELLITUS
     Dosage: AS NEEDED
     Route: 048
  3. LOSARTAN. [Suspect]
     Active Substance: LOSARTAN
     Indication: HYPERTENSION
     Dosage: 150 MG, QD
     Route: 048
  4. VOTRIENT [Suspect]
     Active Substance: PAZOPANIB HYDROCHLORIDE
     Indication: METASTATIC RENAL CELL CARCINOMA
     Dosage: 800 MG, QD
     Route: 048
     Dates: start: 202004, end: 20200610
  5. VOTRIENT [Suspect]
     Active Substance: PAZOPANIB HYDROCHLORIDE
     Dosage: 800 MG, QD
     Route: 048
     Dates: start: 20200413, end: 20201022
  6. LANTUS [Concomitant]
     Active Substance: INSULIN GLARGINE
     Indication: DIABETES MELLITUS
     Dosage: 30 ML (AS NEEDED0
     Route: 058
  7. JARDIANCE DUO [Concomitant]
     Active Substance: EMPAGLIFLOZIN\METFORMIN HYDROCHLORIDE
     Indication: DIABETES MELLITUS
     Dosage: 150 MG (AS NEEDED)
     Route: 048
  8. VOTRIENT [Suspect]
     Active Substance: PAZOPANIB HYDROCHLORIDE
     Dosage: 800 MG, QD
     Route: 048
     Dates: start: 20200614

REACTIONS (12)
  - Constipation [Unknown]
  - Colon cancer [Unknown]
  - Weight decreased [Unknown]
  - Neoplasm malignant [Unknown]
  - Blood pressure decreased [Unknown]
  - Dysarthria [Unknown]
  - Obstruction [Unknown]
  - Abdominal pain upper [Unknown]
  - Blood cholesterol increased [Unknown]
  - Hypertension [Unknown]
  - Vomiting [Unknown]
  - Gastritis [Unknown]

NARRATIVE: CASE EVENT DATE: 202005
